FAERS Safety Report 12654191 (Version 1)
Quarter: 2016Q3

REPORT INFORMATION
  Report Type: Report from Study
  Country: US (occurrence: US)
  Receive Date: 20160816
  Receipt Date: 20160816
  Transmission Date: 20161109
  Serious: Yes (Death, Hospitalization)
  Sender: FDA-Public Use
  Company Number: US-JNJFOC-20160728415

PATIENT
  Age: 69 Year
  Sex: Female

DRUGS (10)
  1. IMBRUVICA [Suspect]
     Active Substance: IBRUTINIB
     Indication: CHRONIC LYMPHOCYTIC LEUKAEMIA
     Route: 048
     Dates: start: 20160421
  2. DIFLUCAN [Concomitant]
     Active Substance: FLUCONAZOLE
  3. NEUPOGEN [Concomitant]
     Active Substance: FILGRASTIM
  4. AMIKACIN [Concomitant]
     Active Substance: AMIKACIN
  5. CIPROFLOXACIN. [Concomitant]
     Active Substance: CIPROFLOXACIN
  6. VANCOMYCIN [Concomitant]
     Active Substance: VANCOMYCIN
  7. MEROPENEM. [Concomitant]
     Active Substance: MEROPENEM
  8. FLAGYL [Concomitant]
     Active Substance: METRONIDAZOLE\METRONIDAZOLE HYDROCHLORIDE
  9. ACYCLOVIR. [Concomitant]
     Active Substance: ACYCLOVIR
  10. CEFEPIME [Concomitant]
     Active Substance: CEFEPIME HYDROCHLORIDE

REACTIONS (2)
  - Bone marrow transplant [None]
  - Post procedural sepsis [Fatal]

NARRATIVE: CASE EVENT DATE: 20160701
